FAERS Safety Report 16206806 (Version 3)
Quarter: 2019Q2

REPORT INFORMATION
  Report Type: Spontaneous
  Country: US (occurrence: US)
  Receive Date: 20190417
  Receipt Date: 20190513
  Transmission Date: 20190711
  Serious: No
  Sender: FDA-Public Use
  Company Number: US-VERTEX PHARMACEUTICALS-2019-003436

PATIENT
  Sex: Female

DRUGS (10)
  1. ALBUTEROL                          /00139501/ [Concomitant]
     Active Substance: ALBUTEROL
     Dosage: TAKE 3 ML BY NEBULIZATION 4 TIMES DAILY
     Route: 055
     Dates: start: 20181026
  2. ATROVENT [Concomitant]
     Active Substance: IPRATROPIUM BROMIDE
     Dosage: UNK
     Dates: start: 20190121
  3. ERGOCALCIFEROL. [Concomitant]
     Active Substance: ERGOCALCIFEROL
     Dosage: TAKE 1 CAPSULE BY MOUTH EVERY 14 DAYS
     Route: 048
     Dates: start: 20190123
  4. LANTUS [Concomitant]
     Active Substance: INSULIN GLARGINE
     Dosage: INJECT 5 UNITS INTO SKIN EVERY MORNING
     Route: 058
     Dates: start: 20180628
  5. SINGULAIR [Concomitant]
     Active Substance: MONTELUKAST SODIUM
     Dosage: 1 DOSAGE FORM, QD
     Route: 048
     Dates: start: 20181001
  6. ORKAMBI [Suspect]
     Active Substance: IVACAFTOR\LUMACAFTOR
     Indication: CYSTIC FIBROSIS
     Dosage: 200/125 MG TABLET, BID
     Route: 048
     Dates: start: 2017
  7. HUMALOG [Concomitant]
     Active Substance: INSULIN LISPRO
     Dosage: 15 MILLILITER
     Dates: start: 20180628
  8. PRILOSEC [Concomitant]
     Active Substance: OMEPRAZOLE MAGNESIUM
     Dosage: 20 MG, QD
  9. ACTIGALL [Concomitant]
     Active Substance: URSODIOL
     Dosage: 2 DOSAGE FORM, BID
     Route: 048
     Dates: start: 20181212
  10. ZENPEP [Concomitant]
     Active Substance: PANCRELIPASE AMYLASE\PANCRELIPASE LIPASE\PANCRELIPASE PROTEASE
     Dosage: TAKE 5 CAPSULES BY MOUTH WITH MEALS AND 3-4 WITH SNACKS
     Route: 048
     Dates: start: 20190423

REACTIONS (1)
  - Infective pulmonary exacerbation of cystic fibrosis [Recovered/Resolved]

NARRATIVE: CASE EVENT DATE: 2019
